FAERS Safety Report 13640983 (Version 2)
Quarter: 2017Q2

REPORT INFORMATION
  Report Type: Report from Study
  Country: FR (occurrence: FR)
  Receive Date: 20170612
  Receipt Date: 20170622
  Transmission Date: 20170830
  Serious: Yes (Death, Hospitalization)
  Sender: FDA-Public Use
  Company Number: FR-ROCHE-1945014

PATIENT
  Age: 64 Year
  Sex: Male
  Weight: 80 kg

DRUGS (10)
  1. SPIRIVA [Suspect]
     Active Substance: TIOTROPIUM BROMIDE MONOHYDRATE
     Indication: BLADDER TRANSITIONAL CELL CARCINOMA METASTATIC
     Route: 055
  2. GEMZAR [Concomitant]
     Active Substance: GEMCITABINE HYDROCHLORIDE
     Dosage: 1ST LINE OF TREATMENT?6 CYCLES
     Route: 065
  3. ATEZOLIZUMAB [Suspect]
     Active Substance: ATEZOLIZUMAB
     Indication: BLADDER TRANSITIONAL CELL CARCINOMA METASTATIC
     Dosage: 60 MG/ML
     Route: 042
     Dates: start: 20170426, end: 20170517
  4. ALFUZOSIN HYDROCHLORIDE. [Suspect]
     Active Substance: ALFUZOSIN HYDROCHLORIDE
     Indication: BLADDER TRANSITIONAL CELL CARCINOMA METASTATIC
     Route: 048
  5. HYDROCHLOROTHIAZIDE. [Suspect]
     Active Substance: HYDROCHLOROTHIAZIDE
     Indication: BLADDER TRANSITIONAL CELL CARCINOMA METASTATIC
     Route: 048
  6. TAHOR [Suspect]
     Active Substance: ATORVASTATIN CALCIUM
     Indication: BLADDER TRANSITIONAL CELL CARCINOMA METASTATIC
     Route: 048
  7. KARDEGIC [Suspect]
     Active Substance: ASPIRIN LYSINE
     Indication: BLADDER TRANSITIONAL CELL CARCINOMA METASTATIC
     Route: 048
  8. CARBOPLATINE [Concomitant]
     Active Substance: CARBOPLATIN
     Dosage: 1ST LINE OF TREATMENT?6 CYCLES
     Route: 065
  9. VALSARTAN. [Suspect]
     Active Substance: VALSARTAN
     Indication: BLADDER TRANSITIONAL CELL CARCINOMA METASTATIC
     Route: 048
  10. RELVAR ELLIPTA [Suspect]
     Active Substance: FLUTICASONE FUROATE\VILANTEROL TRIFENATATE
     Indication: BLADDER TRANSITIONAL CELL CARCINOMA METASTATIC
     Dosage: 92 MICROG/22 MICROG  ?SINGLE DOSE
     Route: 055

REACTIONS (8)
  - Decreased appetite [Fatal]
  - Subileus [Fatal]
  - Agitation [Fatal]
  - Hyponatraemia [Fatal]
  - Oedema peripheral [Fatal]
  - Acute kidney injury [Fatal]
  - Muscular weakness [Fatal]
  - General physical health deterioration [Fatal]

NARRATIVE: CASE EVENT DATE: 20170517
